FAERS Safety Report 7598682-9 (Version None)
Quarter: 2011Q3

REPORT INFORMATION
  Report Type: 
  Country: None (occurrence: None)
  Receive Date: 20110711
  Receipt Date: 20110701
  Transmission Date: 20111222
  Serious: Yes (Hospitalization, Other)
  Sender: FDA-Public Use
  Company Number: US-BIOGENIDEC-2010BI041866

PATIENT
  Age: 44 Year
  Sex: Female

DRUGS (3)
  1. AVONEX [Suspect]
     Route: 030
     Dates: start: 20101001
  2. STEROIDS (NOS) [Concomitant]
  3. AVONEX [Suspect]
     Indication: MULTIPLE SCLEROSIS
     Route: 030
     Dates: start: 20061001, end: 20101001

REACTIONS (4)
  - FEMUR FRACTURE [None]
  - DRUG ADMINISTRATION ERROR [None]
  - CONVULSION [None]
  - BONE DENSITY DECREASED [None]
